FAERS Safety Report 9802128 (Version 1)
Quarter: 2014Q1

REPORT INFORMATION
  Report Type: Spontaneous
  Country: FR (occurrence: FR)
  Receive Date: 20140107
  Receipt Date: 20140107
  Transmission Date: 20141002
  Serious: Yes (Hospitalization)
  Sender: FDA-Public Use
  Company Number: FR-PFIZER INC-2014002622

PATIENT
  Age: 51 Year
  Sex: Male

DRUGS (11)
  1. TRIATEC [Suspect]
     Dosage: 2.5 MG, DAILY
     Route: 065
     Dates: start: 2012, end: 20130814
  2. CELLCEPT [Suspect]
     Dosage: 500 MG, 2X/DAY
     Route: 065
     Dates: end: 20130814
  3. ESIDREX [Suspect]
     Dosage: 25 MG, DAILY
     Route: 065
     Dates: end: 20130814
  4. ALLOPURINOL [Concomitant]
     Dosage: UNK
     Dates: end: 20130814
  5. PROGRAF [Concomitant]
     Dosage: UNK
  6. INIPOMP [Concomitant]
     Dosage: UNK
  7. ADENURIC [Concomitant]
     Dosage: UNK
  8. SOLUPRED [Concomitant]
     Dosage: UNK
  9. TENORMINE [Concomitant]
     Dosage: UNK
  10. AMLOR [Concomitant]
     Dosage: UNK
  11. ARANESP [Concomitant]
     Dosage: UNK

REACTIONS (2)
  - Anaemia [Recovered/Resolved]
  - Macrocytosis [Recovering/Resolving]
